FAERS Safety Report 9353145 (Version 2)
Quarter: 2013Q2

REPORT INFORMATION
  Report Type: Spontaneous
  Country: US (occurrence: None)
  Receive Date: 20130612
  Receipt Date: 20130618
  Transmission Date: 20140414
  Serious: No
  Sender: FDA-Public Use
  Company Number: ACO_36621_2013

PATIENT
  Age: 57 Year
  Sex: Female

DRUGS (1)
  1. AMPYRA (DALFAMPRIDINE) TABLET, 10MG [Suspect]
     Indication: GAIT DISTURBANCE
     Route: 048
     Dates: start: 20120101, end: 20130531

REACTIONS (4)
  - Gait disturbance [None]
  - Impaired driving ability [None]
  - Balance disorder [None]
  - Abasia [None]
